FAERS Safety Report 10853259 (Version 2)
Quarter: 2015Q2

REPORT INFORMATION
  Report Type: Spontaneous
  Country: CZ (occurrence: CZ)
  Receive Date: 20150223
  Receipt Date: 20150422
  Transmission Date: 20150821
  Serious: Yes (Life-Threatening, Hospitalization, Other)
  Sender: FDA-Public Use
  Company Number: CZ-ACCORD-028680

PATIENT
  Age: 59 Year
  Sex: Female

DRUGS (2)
  1. CISPLATIN. [Concomitant]
     Active Substance: CISPLATIN
     Indication: OESOPHAGEAL CARCINOMA
  2. FLUOROURACIL ACCORD [Suspect]
     Active Substance: FLUOROURACIL
     Indication: OESOPHAGEAL CARCINOMA
     Route: 042
     Dates: start: 20150114, end: 20150116

REACTIONS (6)
  - Diarrhoea [Unknown]
  - Cardiotoxicity [Unknown]
  - Alanine aminotransferase increased [Unknown]
  - Mucosal toxicity [Unknown]
  - Aspartate aminotransferase increased [Unknown]
  - Renal failure [Unknown]

NARRATIVE: CASE EVENT DATE: 20150117
